FAERS Safety Report 6338011-1 (Version None)
Quarter: 2009Q3

REPORT INFORMATION
  Report Type: 
  Country: None (occurrence: None)
  Receive Date: 20090902
  Receipt Date: 20090820
  Transmission Date: 20100115
  Serious: Yes (Other)
  Sender: FDA-Public Use
  Company Number: BR-PFIZER INC-2009257903

PATIENT
  Age: 40 Year

DRUGS (4)
  1. DOSTINEX [Suspect]
     Indication: BLOOD PROLACTIN INCREASED
     Dosage: 0.25 MG, WEEKLY
     Route: 048
     Dates: start: 20020101
  2. PREDNISOLONE [Suspect]
  3. AVELOX [Suspect]
  4. FLUIMUCIL [Suspect]

REACTIONS (7)
  - ABDOMINAL PAIN UPPER [None]
  - DECREASED APPETITE [None]
  - INSOMNIA [None]
  - PITUITARY TUMOUR BENIGN [None]
  - SINUSITIS [None]
  - TACHYCARDIA [None]
  - TREMOR [None]
